FAERS Safety Report 13851625 (Version 2)
Quarter: 2017Q3

REPORT INFORMATION
  Report Type: Spontaneous
  Country: IT (occurrence: IT)
  Receive Date: 20170809
  Receipt Date: 20170906
  Transmission Date: 20171127
  Serious: Yes (Life-Threatening, Other)
  Sender: FDA-Public Use
  Company Number: IT-PFIZER INC-2017339538

PATIENT
  Age: 70 Year
  Sex: Female

DRUGS (4)
  1. OMEPRAZEN [Concomitant]
     Active Substance: OMEPRAZOLE
     Indication: GASTROOESOPHAGEAL REFLUX DISEASE
     Dosage: 20 MG/KG, UNK
     Route: 048
  2. CARDIOASPIRIN [Concomitant]
     Active Substance: ASPIRIN
     Indication: HYPERTENSIVE HEART DISEASE
     Dosage: 100 MG, UNK
     Route: 048
  3. BLOPRESID [Concomitant]
     Active Substance: CANDESARTAN CILEXETIL\HYDROCHLOROTHIAZIDE
     Indication: HYPERTENSION
     Dosage: 1 DF, UNK
     Route: 048
  4. TORVAST [Suspect]
     Active Substance: ATORVASTATIN
     Indication: HYPERCHOLESTEROLAEMIA
     Dosage: 20 MG, DAILY
     Route: 048
     Dates: start: 20170716, end: 20170724

REACTIONS (6)
  - Red blood cell count decreased [Unknown]
  - Road traffic accident [Unknown]
  - Blood lactate dehydrogenase increased [Unknown]
  - Somnolence [Recovered/Resolved]
  - Blood creatine phosphokinase increased [Recovering/Resolving]
  - Depressed level of consciousness [Recovered/Resolved]

NARRATIVE: CASE EVENT DATE: 20170724
